FAERS Safety Report 26010964 (Version 1)
Quarter: 2025Q4

REPORT INFORMATION
  Report Type: Spontaneous
  Country: JP (occurrence: JP)
  Receive Date: 20251107
  Receipt Date: 20251107
  Transmission Date: 20260117
  Serious: Yes (Hospitalization, Other)
  Sender: JOHNSON AND JOHNSON
  Company Number: JP-NShinyaku-EVA20251342001001307081

PATIENT
  Age: 7 Decade
  Sex: Female

DRUGS (1)
  1. UPTRAVI [Suspect]
     Active Substance: SELEXIPAG
     Indication: Pulmonary arterial hypertension
     Dosage: UNKNOWN
     Route: 048
     Dates: start: 20211101

REACTIONS (2)
  - Pulmonary arterial hypertension [Recovered/Resolved]
  - Activities of daily living decreased [Unknown]
